FAERS Safety Report 12449556 (Version 6)
Quarter: 2016Q3

REPORT INFORMATION
  Report Type: Report from Study
  Country: PL (occurrence: PL)
  Receive Date: 20160609
  Receipt Date: 20160711
  Transmission Date: 20161109
  Serious: Yes (Life-Threatening, Hospitalization)
  Sender: FDA-Public Use
  Company Number: PL-AMGEN-POLCT2016073115

PATIENT
  Age: 62 Year
  Sex: Female
  Weight: 74.4 kg

DRUGS (16)
  1. ENBREL [Concomitant]
     Active Substance: ETANERCEPT
     Dosage: UNK
     Dates: start: 2007
  2. RYTMONORM [Concomitant]
     Active Substance: PROPAFENONE
     Dosage: 150 MG, UNK
     Route: 048
     Dates: start: 20150116
  3. BIBLOC [Concomitant]
     Dosage: 5 MG, UNK
     Route: 048
     Dates: start: 20150116
  4. ACIDUM FOLICUM [Concomitant]
     Active Substance: FOLIC ACID
     Dosage: 15 MG, UNK
     Route: 048
     Dates: start: 20150511
  5. IBUPROFEN. [Concomitant]
     Active Substance: IBUPROFEN
     Dosage: 200 MG, UNK
     Route: 048
     Dates: start: 20151203
  6. ORTANOL [Concomitant]
     Active Substance: OMEPRAZOLE
     Dosage: 20 MG, UNK
     Route: 048
     Dates: start: 20150116
  7. DICLAC [Concomitant]
     Active Substance: DICLOFENAC
     Dosage: 100 MG, UNK
     Route: 048
     Dates: start: 20150116
  8. DENOSUMAB [Suspect]
     Active Substance: DENOSUMAB
     Indication: OSTEOPOROSIS
     Dosage: 60 MG, Q6MO
     Route: 065
     Dates: start: 20150609
  9. IBUVIT D [Concomitant]
     Dosage: 400 IU, UNK
     Route: 048
     Dates: start: 20150609
  10. VITRUM CALCIUM [Concomitant]
     Dosage: 1 UNK, UNK
     Route: 048
     Dates: start: 20150609
  11. ACARD [Concomitant]
     Active Substance: ASPIRIN
     Dosage: 75 MG, UNK
     Route: 048
     Dates: start: 2003
  12. RAMIZEK [Concomitant]
     Dosage: 1 UNK, UNK
     Route: 048
     Dates: start: 20150511
  13. ZAHRON [Concomitant]
     Dosage: 20 MG, UNK
     Route: 048
     Dates: start: 20150116
  14. METYPRED [Concomitant]
     Active Substance: METHYLPREDNISOLONE
     Dosage: 16 MG, UNK
     Route: 048
     Dates: start: 20141215
  15. DORETA [Concomitant]
     Dosage: 1 UNK, UNK
     Route: 048
     Dates: start: 20151203
  16. METHOTREXATE (METHOTREXATE SODIUM) [Concomitant]
     Active Substance: METHOTREXATE SODIUM
     Dosage: 20 MG, UNK
     Route: 048
     Dates: start: 20141215

REACTIONS (2)
  - Pneumonia bacterial [Recovered/Resolved]
  - Lung abscess [Recovered/Resolved]

NARRATIVE: CASE EVENT DATE: 20160323
